FAERS Safety Report 10162106 (Version 2)
Quarter: 2014Q2

REPORT INFORMATION
  Report Type: Spontaneous
  Country: US (occurrence: None)
  Receive Date: 20140507
  Receipt Date: 20140616
  Transmission Date: 20141212
  Serious: No
  Sender: FDA-Public Use
  Company Number: 2014-00066

PATIENT
  Age: 55 Year
  Sex: Female
  Weight: 85.73 kg

DRUGS (4)
  1. ZICAM ULTRA COLD REMEDY RAPIDMELTS [Suspect]
     Indication: NASOPHARYNGITIS
     Dosage: 3 TABLETS/DAY
     Dates: start: 20140405, end: 20140406
  2. VERAPRMIL [Concomitant]
  3. DIOVAN [Concomitant]
  4. CELEXA [Concomitant]

REACTIONS (2)
  - Anosmia [None]
  - Dysgeusia [None]
